FAERS Safety Report 18735019 (Version 1)
Quarter: 2021Q1

REPORT INFORMATION
  Report Type: Spontaneous
  Country: GB (occurrence: GB)
  Receive Date: 20210113
  Receipt Date: 20210113
  Transmission Date: 20210419
  Serious: Yes (Life-Threatening)
  Sender: FDA-Public Use
  Company Number: GB-MYLANLABS-2021M1001466

PATIENT
  Age: 28 Year
  Sex: Female

DRUGS (12)
  1. CLARITHROMYCIN. [Suspect]
     Active Substance: CLARITHROMYCIN
     Indication: PNEUMONIA
     Dosage: UNK
     Route: 065
  2. SALBUTAMOL [Suspect]
     Active Substance: ALBUTEROL
     Indication: PNEUMONIA
     Dosage: UNK
     Route: 065
  3. N?ACETYLCYSTEINE [Concomitant]
     Active Substance: ACETYLCYSTEINE
     Indication: RESPIRATORY FAILURE
     Dosage: 10 MILLILITER
  4. IPRATROPIUM [Suspect]
     Active Substance: IPRATROPIUM
     Indication: PNEUMONIA
     Dosage: UNK
     Route: 065
  5. HYDROCORTISONE. [Suspect]
     Active Substance: HYDROCORTISONE
     Indication: RESPIRATORY FAILURE
     Dosage: UNK
     Route: 065
  6. BENZYLPENICILLIN [Suspect]
     Active Substance: PENICILLIN G
     Indication: PNEUMONIA
     Dosage: UNK
     Route: 042
  7. KETAMINE [Suspect]
     Active Substance: KETAMINE
     Indication: RESPIRATORY FAILURE
     Dosage: UNK
     Route: 065
  8. SALINE                             /00075401/ [Concomitant]
     Active Substance: SODIUM CHLORIDE
     Indication: PRODUCT USED FOR UNKNOWN INDICATION
     Dosage: NEBULISERS
  9. PROPOFOL. [Suspect]
     Active Substance: PROPOFOL
     Indication: RESPIRATORY FAILURE
     Dosage: UNK
     Route: 065
  10. ROCURONIUM [Suspect]
     Active Substance: ROCURONIUM BROMIDE
     Indication: RESPIRATORY FAILURE
     Dosage: UNK
     Route: 065
  11. MAGNESIUM [Suspect]
     Active Substance: MAGNESIUM
     Indication: RESPIRATORY FAILURE
     Dosage: UNK
     Route: 042
  12. AMINOPHYLLINE. [Suspect]
     Active Substance: AMINOPHYLLINE
     Indication: RESPIRATORY FAILURE
     Dosage: UNK
     Route: 065

REACTIONS (1)
  - Drug ineffective [Unknown]
